FAERS Safety Report 19608121 (Version 1)
Quarter: 2021Q3

REPORT INFORMATION
  Report Type: Report from Study
  Country: CA (occurrence: CA)
  Receive Date: 20210726
  Receipt Date: 20210726
  Transmission Date: 20211014
  Serious: Yes (Hospitalization)
  Sender: FDA-Public Use
  Company Number: CA-JNJFOC-20210738584

PATIENT
  Age: 48 Year
  Sex: Male
  Weight: 138 kg

DRUGS (1)
  1. REMICADE [Suspect]
     Active Substance: INFLIXIMAB
     Indication: PYODERMA GANGRENOSUM
     Route: 042
     Dates: start: 20210717

REACTIONS (11)
  - Defaecation urgency [Unknown]
  - Nausea [Unknown]
  - Infusion related reaction [Unknown]
  - Micturition urgency [Unknown]
  - Oxygen saturation decreased [Recovering/Resolving]
  - Agitation [Unknown]
  - Skin warm [Unknown]
  - Pallor [Unknown]
  - Chest discomfort [Recovering/Resolving]
  - Confusional state [Unknown]
  - Panic attack [Unknown]

NARRATIVE: CASE EVENT DATE: 20210717
